FAERS Safety Report 5223364-8 (Version None)
Quarter: 2007Q1

REPORT INFORMATION
  Report Type: 
  Country: None (occurrence: None)
  Receive Date: 20061201
  Receipt Date: 20060703
  Transmission Date: 20070707
  Serious: No
  Sender: FDA-Public Use
  Company Number: 2006PV016786

PATIENT
  Age: 82 Year
  Sex: Female
  Weight: 82.5547 kg

DRUGS (4)
  1. BYETTA [Suspect]
     Indication: DIABETES MELLITUS NON-INSULIN-DEPENDENT
     Dosage: 5 MCG; BID; SC
     Route: 058
     Dates: start: 20060602
  2. GLYBURIDE [Concomitant]
  3. ACTOS [Concomitant]
  4. ASPIRIN [Concomitant]

REACTIONS (5)
  - ACCIDENTAL NEEDLE STICK [None]
  - INJECTION SITE BRUISING [None]
  - NAUSEA [None]
  - URTICARIA [None]
  - WEIGHT DECREASED [None]
